FAERS Safety Report 6885539-1 (Version None)
Quarter: 2010Q3

REPORT INFORMATION
  Report Type: 
  Country: None (occurrence: None)
  Receive Date: 20100729
  Receipt Date: 20081008
  Transmission Date: 20110219
  Serious: No
  Sender: FDA-Public Use
  Company Number: US-PFIZER INC-2008085001

PATIENT
  Age: 40 Year
  Sex: Female
  Weight: 68.2 kg

DRUGS (4)
  1. CELEBREX [Suspect]
     Indication: INTERVERTEBRAL DISC DISORDER
     Dates: start: 20081008
  2. ALEVE (CAPLET) [Concomitant]
     Dates: end: 20081007
  3. LEXAPRO [Concomitant]
  4. VALIUM [Concomitant]
     Indication: MUSCLE SPASMS

REACTIONS (1)
  - ABDOMINAL PAIN UPPER [None]
